FAERS Safety Report 8837050 (Version 1)
Quarter: 2012Q4

REPORT INFORMATION
  Report Type: 
  Country: IT (occurrence: IT)
  Receive Date: 20121012
  Receipt Date: 20121012
  Transmission Date: 20130627
  Serious: Yes (Hospitalization)
  Sender: FDA-Public Use
  Company Number: IT-NOVOPROD-361562

PATIENT
  Age: 76 Year
  Sex: Male

DRUGS (10)
  1. NOVOMIX 30 FLEXPEN [Suspect]
     Indication: DIABETES MELLITUS
     Dosage: UNK
     Route: 058
     Dates: start: 20120315
  2. HUMALOG [Suspect]
     Indication: DIABETES MELLITUS
     Dosage: UNK
     Route: 058
     Dates: start: 20120315
  3. INDERAL [Suspect]
     Dosage: UNK
     Route: 048
     Dates: start: 20120315
  4. SIMVASTATINA [Concomitant]
  5. SPIRONOLACTONE [Concomitant]
  6. RAMIPRIL [Concomitant]
  7. TAPAZOLE [Concomitant]
  8. CARDIRENE [Concomitant]
  9. ZOLOFT [Concomitant]
  10. LASIX                              /00032601/ [Concomitant]

REACTIONS (5)
  - Bradyphrenia [Recovered/Resolved]
  - Bradykinesia [Recovered/Resolved]
  - Confusional state [Recovered/Resolved]
  - Sinus bradycardia [Recovered/Resolved]
  - Hypoglycaemia [Recovered/Resolved]
